FAERS Safety Report 15586645 (Version 1)
Quarter: 2018Q4

REPORT INFORMATION
  Report Type: Spontaneous
  Country: US (occurrence: US)
  Receive Date: 20181105
  Receipt Date: 20181105
  Transmission Date: 20190205
  Serious: Yes (Death, Life-Threatening, Hospitalization, Other)
  Sender: FDA-Public Use
  Company Number: US-ACELLA PHARMACEUTICALS, LLC-2058406

PATIENT
  Age: 39 Year
  Sex: Female

DRUGS (4)
  1. GABAPENTIN. [Suspect]
     Active Substance: GABAPENTIN
  2. U47700 (DESIGNER OPIOID) [Suspect]
     Active Substance: U-47700
  3. DOXEPIN HYDROCHLORIDE. [Suspect]
     Active Substance: DOXEPIN HYDROCHLORIDE
  4. VENLAFAXINE [Suspect]
     Active Substance: VENLAFAXINE HYDROCHLORIDE

REACTIONS (8)
  - Respiratory depression [Fatal]
  - Metabolic acidosis [Fatal]
  - Coma [Fatal]
  - Bradypnoea [Fatal]
  - Depressed level of consciousness [Fatal]
  - Pneumonia aspiration [Fatal]
  - Acute lung injury [Fatal]
  - Death [Fatal]
